FAERS Safety Report 4480400-4 (Version None)
Quarter: 2004Q4

REPORT INFORMATION
  Report Type: 
  Country: None (occurrence: None)
  Receive Date: 20041018
  Receipt Date: 20041006
  Transmission Date: 20050328
  Serious: No
  Sender: FDA-Public Use
  Company Number: 2004-120842-NL

PATIENT
  Age: 1 Month
  Sex: Male

DRUGS (4)
  1. ROCURONIUM BROMIDE [Suspect]
     Indication: HYPOTONIA
     Dosage: 2 MG ONCE
     Dates: start: 20041001, end: 20041001
  2. ROCURONIUM BROMIDE [Suspect]
     Indication: INTUBATION
     Dosage: 2 MG ONCE
     Dates: start: 20041001, end: 20041001
  3. LORAZEPAM [Concomitant]
  4. CAUDAL MEDICATION [Concomitant]

REACTIONS (5)
  - COMA [None]
  - MOVEMENT DISORDER [None]
  - POST PROCEDURAL COMPLICATION [None]
  - PREMATURE BABY [None]
  - SOMNOLENCE [None]
